FAERS Safety Report 8820502 (Version 1)
Quarter: 2012Q4

REPORT INFORMATION
  Report Type: 
  Country: US (occurrence: US)
  Receive Date: 20121002
  Receipt Date: 20121002
  Transmission Date: 20130627
  Serious: Yes (Death)
  Sender: FDA-Public Use
  Company Number: US-COVIDIEN/TYCO HEALTHCARE/MALLINCKRODT-T201200427

PATIENT
  Age: 24 Year
  Sex: Male

DRUGS (1)
  1. HYDROMORPHONE [Suspect]
     Dosage: UNK
     Dates: start: 2009

REACTIONS (1)
  - Overdose [Fatal]
